FAERS Safety Report 11780106 (Version 1)
Quarter: 2015Q4

REPORT INFORMATION
  Report Type: Spontaneous
  Country: US (occurrence: US)
  Receive Date: 20151126
  Receipt Date: 20151126
  Transmission Date: 20160304
  Serious: No
  Sender: FDA-Public Use
  Company Number: US-JNJFOC-20151012328

PATIENT
  Age: 2 Month
  Sex: Male
  Weight: 4.08 kg

DRUGS (2)
  1. ACETAMINOPHEN INFANTS [Suspect]
     Active Substance: ACETAMINOPHEN
     Indication: SINUS CONGESTION
     Route: 048
     Dates: start: 20151015
  2. ACETAMINOPHEN INFANTS [Suspect]
     Active Substance: ACETAMINOPHEN
     Indication: NASOPHARYNGITIS
     Route: 048
     Dates: start: 20151015

REACTIONS (1)
  - Product use issue [Unknown]

NARRATIVE: CASE EVENT DATE: 20151015
